FAERS Safety Report 8603805 (Version 3)
Quarter: 2012Q4

REPORT INFORMATION
  Report Type: 
  Country: US (occurrence: US)
  Receive Date: 20120607
  Receipt Date: 20120906
  Transmission Date: 20130627
  Serious: Yes (Other)
  Sender: FDA-Public Use
  Company Number: US-PFIZER INC-2012134251

PATIENT
  Age: 69 Year
  Sex: Male
  Weight: 81.63 kg

DRUGS (6)
  1. LYRICA [Suspect]
     Indication: DIABETIC NEUROPATHY
     Dosage: UNK, 3x/day
     Route: 048
  2. LYRICA [Suspect]
     Indication: NEUROPATHY PERIPHERAL
     Dosage: 150 mg, 3x/day
     Route: 048
  3. BENADRYL [Concomitant]
     Indication: SLEEP DISORDER
     Dosage: 20 mg, 1x/day
  4. ATENOLOL [Concomitant]
     Indication: HYPERTENSION
     Dosage: 50 mg, 1x/day
  5. HUMALOG [Concomitant]
     Indication: DIABETES MELLITUS
     Dosage: 10 IU, 2x/day
  6. LANTUS [Concomitant]
     Indication: DIABETES MELLITUS
     Dosage: 50 mg, daily

REACTIONS (7)
  - Weight increased [Recovering/Resolving]
  - Joint swelling [Recovered/Resolved]
  - Oedema peripheral [Not Recovered/Not Resolved]
  - Arthralgia [Recovered/Resolved]
  - Hypoaesthesia [Not Recovered/Not Resolved]
  - Pain in extremity [Not Recovered/Not Resolved]
  - Dry mouth [Not Recovered/Not Resolved]
